FAERS Safety Report 18730514 (Version 1)
Quarter: 2021Q1

REPORT INFORMATION
  Report Type: Spontaneous
  Country: US (occurrence: US)
  Receive Date: 20210112
  Receipt Date: 20210112
  Transmission Date: 20210419
  Serious: Yes (Other)
  Sender: FDA-Public Use
  Company Number: None

PATIENT
  Age: 59 Year
  Sex: Male
  Weight: 103.5 kg

DRUGS (3)
  1. METFORMIN HCL ER 750MG TABLET [Suspect]
     Active Substance: METFORMIN HYDROCHLORIDE
     Indication: INSULIN RESISTANCE
     Dosage: ?          QUANTITY:90 TABLET(S);?
     Route: 048
     Dates: start: 20201201, end: 20201220
  2. LIPITOR [Concomitant]
     Active Substance: ATORVASTATIN CALCIUM
  3. METFORMIN [Concomitant]
     Active Substance: METFORMIN HYDROCHLORIDE

REACTIONS (4)
  - Nausea [None]
  - Recalled product administered [None]
  - Abdominal pain upper [None]
  - Abdominal discomfort [None]

NARRATIVE: CASE EVENT DATE: 20201210
